FAERS Safety Report 4918838-0 (Version None)
Quarter: 2006Q1

REPORT INFORMATION
  Report Type: 
  Country: None (occurrence: None)
  Receive Date: 20060221
  Receipt Date: 20060221
  Transmission Date: 20060701
  Serious: Yes (Hospitalization)
  Sender: FDA-Public Use
  Company Number: None

PATIENT
  Age: 45 Year
  Sex: Male

DRUGS (4)
  1. LEFLUNOMIDE [Suspect]
     Dosage: 20MG  DAILY   PO
     Route: 048
  2. PREDNISONE [Concomitant]
  3. VALDECOXIB [Concomitant]
  4. METOPROLOL XL [Concomitant]

REACTIONS (3)
  - IMMUNODEFICIENCY [None]
  - INFECTION IN AN IMMUNOCOMPROMISED HOST [None]
  - MENINGITIS CRYPTOCOCCAL [None]
